FAERS Safety Report 16429604 (Version 1)
Quarter: 2019Q2

REPORT INFORMATION
  Report Type: Spontaneous
  Country: CA (occurrence: CA)
  Receive Date: 20190614
  Receipt Date: 20190614
  Transmission Date: 20190711
  Serious: Yes (Hospitalization, Other)
  Sender: FDA-Public Use
  Company Number: CA-SUN PHARMACEUTICAL INDUSTRIES LTD-2019R1-210201

PATIENT
  Age: 13 Year
  Sex: Male

DRUGS (2)
  1. ISOTRETINOIN. [Suspect]
     Active Substance: ISOTRETINOIN
     Indication: ACNE CONGLOBATA
     Dosage: 0.5 MILLIGRAM/KILOGRAM, DAILY
     Route: 048
  2. DOXYCYCLINE. [Suspect]
     Active Substance: DOXYCYCLINE
     Indication: ACNE CONGLOBATA
     Dosage: 100 MILLIGRAM, BID
     Route: 065

REACTIONS (9)
  - Transaminases increased [Recovering/Resolving]
  - Pyoderma gangrenosum [Recovering/Resolving]
  - Neutrophilic dermatosis [Recovering/Resolving]
  - Pain [Recovering/Resolving]
  - Acne fulminans [Recovering/Resolving]
  - Acute febrile neutrophilic dermatosis [Recovering/Resolving]
  - Arthralgia [Recovering/Resolving]
  - Myalgia [Recovering/Resolving]
  - Pyrexia [Recovering/Resolving]
